FAERS Safety Report 10342037 (Version 2)
Quarter: 2019Q2

REPORT INFORMATION
  Report Type: Spontaneous
  Country: NL (occurrence: NL)
  Receive Date: 20140725
  Receipt Date: 20190408
  Transmission Date: 20190711
  Serious: Yes (Other)
  Sender: FDA-Public Use
  Company Number: NL-ACCORD-024948

PATIENT
  Age: 34 Year
  Sex: Female

DRUGS (2)
  1. CISPLATIN. [Suspect]
     Active Substance: CISPLATIN
     Indication: CERVIX CARCINOMA
     Dosage: WEEKLY FOR 6 WEEKS, FIRST DOSE WAS ADMINISTERED AT 26 5/7 WEEKS OF GESTATION.
  2. PACLITAXEL/PACLITAXEL LIPOSOME [Suspect]
     Active Substance: PACLITAXEL
     Indication: CERVIX CARCINOMA
     Dosage: WEEKLY FOR 6 WEEKS, FIRST DOSE WAS ADMINISTERED AT 26 5/7 WEEKS OF GESTATION.

REACTIONS (6)
  - Maternal exposure during pregnancy [Unknown]
  - Creatinine renal clearance decreased [Unknown]
  - Premature delivery [Unknown]
  - Neutropenia [Unknown]
  - Thrombocytopenia [Unknown]
  - Off label use [Unknown]
